FAERS Safety Report 7765884-8 (Version None)
Quarter: 2011Q3

REPORT INFORMATION
  Report Type: 
  Country: None (occurrence: None)
  Receive Date: 20110921
  Receipt Date: 20110908
  Transmission Date: 20111222
  Serious: Yes (Hospitalization, Disabling, Other)
  Sender: FDA-Public Use
  Company Number: BR-GENENTECH-310778

PATIENT
  Sex: Female
  Weight: 35 kg

DRUGS (12)
  1. FOLIC ACID [Concomitant]
     Indication: PRODUCT USED FOR UNKNOWN INDICATION
     Dosage: 100 MG, UNK
  2. ENOXAPARIN SODIUM [Concomitant]
     Indication: PRODUCT USED FOR UNKNOWN INDICATION
     Dosage: 20 MG, UNK
  3. PANTOPRAZOLE [Concomitant]
     Indication: PRODUCT USED FOR UNKNOWN INDICATION
     Dosage: 40 MG, UNK
  4. CITONEURIN [Concomitant]
     Indication: PRODUCT USED FOR UNKNOWN INDICATION
     Dosage: 5000 UNK, UNK
  5. LYRICA [Concomitant]
     Indication: PRODUCT USED FOR UNKNOWN INDICATION
     Dosage: 75 MG, UNK
  6. OMEPRAZOLE [Concomitant]
     Indication: PRODUCT USED FOR UNKNOWN INDICATION
     Dosage: 40 MG, UNK
  7. CYCLOSPORINE [Concomitant]
     Indication: PRODUCT USED FOR UNKNOWN INDICATION
     Dosage: 50 MG, UNK
  8. RITUXIMAB [Suspect]
     Indication: SYSTEMIC LUPUS ERYTHEMATOSUS
     Dosage: UNK
     Route: 065
     Dates: start: 20100701, end: 20100820
  9. CALCORT [Concomitant]
     Indication: PRODUCT USED FOR UNKNOWN INDICATION
     Dosage: 6 MG, UNK
  10. ACTONEL [Concomitant]
     Indication: OSTEOPENIA
     Dosage: 150 MG, UNK
  11. AZATHIOPRINE [Concomitant]
     Indication: PRODUCT USED FOR UNKNOWN INDICATION
     Dosage: 50 MG, UNK
  12. BACLOFEN [Concomitant]
     Indication: MUSCLE SPASMS
     Dosage: 10 MG, UNK

REACTIONS (14)
  - RESPIRATORY PARALYSIS [None]
  - DUODENAL ULCER [None]
  - DYSPHAGIA [None]
  - APHASIA [None]
  - RESPIRATORY FAILURE [None]
  - URINARY TRACT DISORDER [None]
  - HEMIPLEGIA [None]
  - OESOPHAGITIS [None]
  - WOUND [None]
  - SYSTEMIC LUPUS ERYTHEMATOSUS [None]
  - AGEUSIA [None]
  - GASTRITIS [None]
  - GASTRIC DISORDER [None]
  - CEREBRAL THROMBOSIS [None]
